FAERS Safety Report 4910588-X (Version None)
Quarter: 2006Q1

REPORT INFORMATION
  Report Type: 
  Country: None (occurrence: None)
  Receive Date: 20060214
  Receipt Date: 20060203
  Transmission Date: 20060701
  Serious: Yes (Hospitalization)
  Sender: FDA-Public Use
  Company Number: US-JNJFOC-20060201083

PATIENT
  Sex: Male

DRUGS (7)
  1. REMICADE [Suspect]
     Route: 042
  2. REMICADE [Suspect]
     Indication: CROHN'S DISEASE
     Route: 042
  3. CODEINE [Concomitant]
  4. ANTIBIOTICS [Concomitant]
  5. INHALER [Concomitant]
  6. NEBULIZER TREATMENT [Concomitant]
  7. DECONGESTANTS [Concomitant]

REACTIONS (7)
  - APHONIA [None]
  - ARTHRALGIA [None]
  - COUGH [None]
  - DYSPNOEA [None]
  - FATIGUE [None]
  - LOSS OF CONSCIOUSNESS [None]
  - RASH [None]
